FAERS Safety Report 7727067-7 (Version None)
Quarter: 2011Q3

REPORT INFORMATION
  Report Type: 
  Country: None (occurrence: None)
  Receive Date: 20110902
  Receipt Date: 20110826
  Transmission Date: 20111222
  Serious: Yes (Other)
  Sender: FDA-Public Use
  Company Number: HK-JNJFOC-20110812869

PATIENT
  Age: 40 Year
  Sex: Male

DRUGS (3)
  1. REMICADE [Suspect]
     Dosage: ^3MG TO 5 MG^ DOSAGE
     Route: 042
  2. REMICADE [Suspect]
     Indication: RHEUMATOID ARTHRITIS
     Dosage: ^3MG TO 5MG^ DOSAGE
     Route: 042
  3. REMICADE [Suspect]
     Dosage: ^3MG TO 5MG^ DOSAGE
     Route: 042

REACTIONS (1)
  - ASTHMA [None]
